FAERS Safety Report 18768601 (Version 1)
Quarter: 2021Q1

REPORT INFORMATION
  Report Type: Spontaneous
  Country: GR (occurrence: GR)
  Receive Date: 20210121
  Receipt Date: 20210121
  Transmission Date: 20210419
  Serious: Yes (Life-Threatening, Other)
  Sender: FDA-Public Use
  Company Number: GR-NOVOPROD-780734

PATIENT
  Sex: Male

DRUGS (2)
  1. SAXENDA [Suspect]
     Active Substance: LIRAGLUTIDE
     Indication: OBESITY
     Dosage: UNK
     Route: 065
  2. SAXENDA [Suspect]
     Active Substance: LIRAGLUTIDE
     Dosage: 3 MG, QD
     Route: 065

REACTIONS (3)
  - Pancreatic carcinoma metastatic [Unknown]
  - Weight decreased [Unknown]
  - Metastases to liver [Unknown]
